FAERS Safety Report 15169257 (Version 1)
Quarter: 2018Q3

REPORT INFORMATION
  Report Type: Spontaneous
  Country: KR (occurrence: KR)
  Receive Date: 20180720
  Receipt Date: 20180720
  Transmission Date: 20181010
  Serious: Yes (Other)
  Sender: FDA-Public Use
  Company Number: KR-ALKEM LABORATORIES LIMITED-KR-ALKEM-2018-01790

PATIENT
  Age: 52 Year
  Sex: Female

DRUGS (2)
  1. LINEZOLID. [Suspect]
     Active Substance: LINEZOLID
     Indication: NOCARDIOSIS
     Dosage: UNK
     Route: 065
  2. GATIFLOXACIN. [Concomitant]
     Active Substance: GATIFLOXACIN
     Indication: NOCARDIOSIS
     Dosage: UNK
     Route: 065

REACTIONS (3)
  - Hyperlactacidaemia [Recovered/Resolved]
  - Bone marrow failure [Unknown]
  - Lactic acidosis [Recovered/Resolved]
